FAERS Safety Report 5704803-2 (Version None)
Quarter: 2008Q2

REPORT INFORMATION
  Report Type: 
  Country: None (occurrence: None)
  Receive Date: 20080414
  Receipt Date: 20080402
  Transmission Date: 20081010
  Serious: Yes (Hospitalization)
  Sender: FDA-Public Use
  Company Number: US-AMGEN-US242528

PATIENT
  Sex: Female

DRUGS (4)
  1. ENBREL [Suspect]
     Indication: RHEUMATOID ARTHRITIS
     Route: 058
     Dates: start: 20041001
  2. ENBREL [Suspect]
     Indication: CONNECTIVE TISSUE DISORDER
  3. METHOTREXATE [Concomitant]
     Route: 048
  4. CELEBREX [Concomitant]
     Route: 048

REACTIONS (5)
  - ANXIETY [None]
  - PAIN [None]
  - PANIC ATTACK [None]
  - PRE-ECLAMPSIA [None]
  - VIRAL INFECTION [None]
